FAERS Safety Report 10540267 (Version 1)
Quarter: 2014Q4

REPORT INFORMATION
  Report Type: Spontaneous
  Country: US (occurrence: None)
  Receive Date: 20141010
  Receipt Date: 20141010
  Transmission Date: 20150529
  Serious: Yes (Other)
  Sender: FDA-Public Use
  Company Number: 2227444

PATIENT
  Age: 77 Year
  Sex: Male
  Weight: 67.73 kg

DRUGS (6)
  1. (ASA) ASPIRIN [Concomitant]
     Active Substance: ASPIRIN
  2. (WARFARIN) [Concomitant]
  3. (DIGOXIN) [Concomitant]
  4. (COREG) [Concomitant]
  5. (PROTONIX) [Concomitant]
  6. METHOTREXATE (METHOTREXATE SODIUM) [Suspect]
     Active Substance: METHOTREXATE SODIUM
     Indication: LYMPHOMA
     Dosage: 4.536 GM, ONE, INTRAVENOUS (NOT OTHERWISE SPECIFIED)
     Route: 042
     Dates: start: 20130912, end: 20130912

REACTIONS (1)
  - Blood creatinine increased [None]

NARRATIVE: CASE EVENT DATE: 20130913
